FAERS Safety Report 9782398 (Version 2)
Quarter: 2014Q1

REPORT INFORMATION
  Report Type: Spontaneous
  Country: DK (occurrence: DK)
  Receive Date: 20131226
  Receipt Date: 20140311
  Transmission Date: 20141002
  Serious: Yes (Hospitalization)
  Sender: FDA-Public Use
  Company Number: PHHY2013DK150824

PATIENT
  Sex: Female

DRUGS (2)
  1. ULTIBRO BREEZHALER [Suspect]
     Indication: DYSPNOEA
     Dosage: 1 DF, QD
     Dates: start: 20131210
  2. ULTIBRO BREEZHALER [Suspect]
     Indication: OFF LABEL USE

REACTIONS (2)
  - Pneumonia [Unknown]
  - Drug ineffective [Unknown]
